FAERS Safety Report 5721566-5 (Version None)
Quarter: 2008Q2

REPORT INFORMATION
  Report Type: 
  Country: None (occurrence: None)
  Receive Date: 20080429
  Receipt Date: 20070306
  Transmission Date: 20081010
  Serious: No
  Sender: FDA-Public Use
  Company Number: US-ASTRAZENECA-2007UW04273

PATIENT
  Age: 67 Year
  Sex: Male
  Weight: 99.8 kg

DRUGS (13)
  1. NEXIUM [Suspect]
     Indication: GASTROOESOPHAGEAL REFLUX DISEASE
  2. NEXIUM [Suspect]
     Indication: DYSPHONIA
  3. NEXIUM [Suspect]
     Indication: OESOPHAGEAL DISORDER
  4. NEXIUM [Suspect]
  5. NEXIUM [Suspect]
  6. NEXIUM [Suspect]
  7. LOTREL [Concomitant]
  8. MULTI-VITAMIN [Concomitant]
  9. PREVACID [Concomitant]
  10. ACIPHEX [Concomitant]
  11. OMEPRAZOLE [Concomitant]
  12. PRILOSEC OTC [Concomitant]
  13. ZANTAC [Concomitant]

REACTIONS (2)
  - DYSPHONIA [None]
  - GASTROOESOPHAGEAL REFLUX DISEASE [None]
